FAERS Safety Report 21154578 (Version 1)
Quarter: 2022Q3

REPORT INFORMATION
  Report Type: Spontaneous
  Country: CN (occurrence: None)
  Receive Date: 20220801
  Receipt Date: 20220801
  Transmission Date: 20221027
  Serious: Yes (Hospitalization)
  Sender: FDA-Public Use
  Company Number: CN-ROCHE-3150711

PATIENT
  Age: 62 Year
  Sex: Female
  Weight: 64.9 kg

DRUGS (5)
  1. PERJETA [Suspect]
     Active Substance: PERTUZUMAB
     Indication: Breast cancer in situ
     Route: 041
     Dates: start: 20220628, end: 20220628
  2. HERCEPTIN [Suspect]
     Active Substance: TRASTUZUMAB
     Indication: Breast cancer in situ
     Dosage: POWDER INJECTION
     Route: 041
     Dates: start: 20220628, end: 20220628
  3. DOCETAXEL [Suspect]
     Active Substance: DOCETAXEL
     Indication: Breast cancer in situ
     Route: 041
     Dates: start: 20220628, end: 20220628
  4. SODIUM CHLORIDE [Concomitant]
     Active Substance: SODIUM CHLORIDE
     Indication: Breast cancer in situ
     Route: 041
     Dates: start: 20220628, end: 20220628
  5. DEXTROSE [Concomitant]
     Active Substance: DEXTROSE
     Indication: Breast cancer in situ
     Route: 041
     Dates: start: 20220628, end: 20220628

REACTIONS (1)
  - Myelosuppression [Recovering/Resolving]

NARRATIVE: CASE EVENT DATE: 20220709
